FAERS Safety Report 12825946 (Version 1)
Quarter: 2016Q4

REPORT INFORMATION
  Report Type: Spontaneous
  Country: US (occurrence: US)
  Receive Date: 20161007
  Receipt Date: 20161007
  Transmission Date: 20170207
  Serious: No
  Sender: FDA-Public Use
  Company Number: US-WATSON-2015-20398

PATIENT
  Age: 54 Year
  Sex: Male

DRUGS (2)
  1. FENTANYL-75 (WATSON LABORATORIES) [Suspect]
     Active Substance: FENTANYL
     Indication: BACK PAIN
     Dosage: 75 MCG, Q 3 DAYS
     Route: 062
  2. OXYCODONE [Concomitant]
     Active Substance: OXYCODONE
     Indication: BREAKTHROUGH PAIN
     Dosage: UNK, UNKNOWN
     Route: 065

REACTIONS (1)
  - Drug ineffective [Not Recovered/Not Resolved]
